FAERS Safety Report 8890810 (Version 1)
Quarter: 2012Q4

REPORT INFORMATION
  Report Type: 
  Country: US (occurrence: US)
  Receive Date: 20121106
  Receipt Date: 20121106
  Transmission Date: 20130627
  Serious: Yes (Other)
  Sender: FDA-Public Use
  Company Number: PHHY2012US100401

PATIENT
  Age: 75 Year
  Sex: Female

DRUGS (1)
  1. ACETYLSALICYLIC ACID [Suspect]
     Indication: PAIN
     Route: 048

REACTIONS (3)
  - Ulcer [Not Recovered/Not Resolved]
  - Muscle spasms [Unknown]
  - Incorrect drug administration duration [Unknown]
